FAERS Safety Report 4906372-3 (Version None)
Quarter: 2006Q1

REPORT INFORMATION
  Report Type: 
  Country: None (occurrence: None)
  Receive Date: 20060209
  Receipt Date: 20060130
  Transmission Date: 20060701
  Serious: Yes (Hospitalization)
  Sender: FDA-Public Use
  Company Number: 2006CG00223

PATIENT
  Age: 76 Year
  Sex: Male
  Weight: 82 kg

DRUGS (5)
  1. ZESTRIL [Suspect]
     Route: 048
  2. PLAVIX [Suspect]
     Route: 048
  3. ZYLORIC [Suspect]
     Route: 048
  4. LASILIX [Suspect]
     Route: 048
  5. CORDARONE [Suspect]
     Route: 048

REACTIONS (4)
  - LACRIMATION INCREASED [None]
  - PAPILLOEDEMA [None]
  - VISION BLURRED [None]
  - VISUAL FIELD DEFECT [None]
